FAERS Safety Report 9555431 (Version 1)
Quarter: 2013Q3

REPORT INFORMATION
  Report Type: Spontaneous
  Country: US (occurrence: None)
  Receive Date: 20130906
  Receipt Date: 20130906
  Transmission Date: 20140515
  Serious: Yes (Hospitalization)
  Sender: FDA-Public Use
  Company Number: 163-POMAL-13081099

PATIENT
  Age: 62 Year
  Sex: Male

DRUGS (7)
  1. POMALYST [Suspect]
     Indication: PLASMA CELL MYELOMA
     Route: 048
     Dates: start: 20130219, end: 20130805
  2. COREG (CARVEDILOL) [Concomitant]
  3. LYRICA (PREGABALIN) [Concomitant]
  4. ACYCLOVIR (ACICLOVIR) (ACICLOVIR) [Concomitant]
  5. UROXATRAL (AFLUZOSIN HYDROCHLORIDE) [Concomitant]
  6. FOLIC ACID (FOLIC ACID) [Concomitant]
  7. VITAMIN B12 (CYANOCOBALAMIN) [Concomitant]

REACTIONS (1)
  - White blood cell count decreased [None]
